FAERS Safety Report 7677489-8 (Version None)
Quarter: 2011Q3

REPORT INFORMATION
  Report Type: 
  Country: None (occurrence: None)
  Receive Date: 20110808
  Receipt Date: 20110722
  Transmission Date: 20111222
  Serious: Yes (Death, Other)
  Sender: FDA-Public Use
  Company Number: AUR-APL-2011-04403

PATIENT
  Age: 21 Year
  Sex: Male
  Weight: 120 kg

DRUGS (3)
  1. QUETIAPINE FUMARATE [Suspect]
     Indication: OBSESSIVE-COMPULSIVE DISORDER
     Dosage: 800 MG (800 MG, 1 IN 1 D), ORAL
     Route: 048
     Dates: start: 20091101, end: 20110705
  2. PREGABALIN [Suspect]
     Indication: OBSESSIVE-COMPULSIVE DISORDER
     Dosage: 450 MG (225 MG, 2 I N1 D), ORAL
     Route: 048
     Dates: start: 20091101, end: 20110705
  3. FLUOXETINE [Suspect]
     Indication: OBSESSIVE-COMPULSIVE DISORDER
     Dosage: 60 MG (60 MG, 1 IN 1 D), ORAL
     Route: 048
     Dates: start: 20091101, end: 20110705

REACTIONS (6)
  - RHABDOMYOLYSIS [None]
  - SYSTEMIC INFLAMMATORY RESPONSE SYNDROME [None]
  - NO THERAPEUTIC RESPONSE [None]
  - MULTI-ORGAN FAILURE [None]
  - HYPERTHERMIA [None]
  - PANCREATITIS NECROTISING [None]
